FAERS Safety Report 19141939 (Version 2)
Quarter: 2021Q3

REPORT INFORMATION
  Report Type: Report from Study
  Country: US (occurrence: US)
  Receive Date: 20210415
  Receipt Date: 20210705
  Transmission Date: 20211014
  Serious: No
  Sender: FDA-Public Use
  Company Number: NVSC2021US078598

PATIENT
  Age: 32 Year
  Sex: Male

DRUGS (1)
  1. KESIMPTA [Suspect]
     Active Substance: OFATUMUMAB
     Indication: PRODUCT USED FOR UNKNOWN INDICATION
     Dosage: UNK
     Route: 058
     Dates: start: 20210405

REACTIONS (2)
  - Wrong technique in device usage process [Unknown]
  - Chills [Recovered/Resolved]

NARRATIVE: CASE EVENT DATE: 20210405
